FAERS Safety Report 5300327-5 (Version None)
Quarter: 2007Q2

REPORT INFORMATION
  Report Type: 
  Country: None (occurrence: None)
  Receive Date: 20070413
  Receipt Date: 20070413
  Transmission Date: 20071010
  Serious: No
  Sender: FDA-Public Use
  Company Number: None

PATIENT
  Age: 57 Year
  Sex: Female
  Weight: 51.2565 kg

DRUGS (2)
  1. GENTLE LAXATIVE; BISACODYL USP NONE CVS PHARMACY [Suspect]
     Indication: FLEXIBLE SIGMOIDOSCOPY
     Dosage: 1-3 TABS - USUALLY DAILY PO
     Route: 048
     Dates: start: 20070321, end: 20070321
  2. GENTLE LAXATIVE; BISACODYL USP NONE CVS PHARMACY [Suspect]
     Indication: FLEXIBLE SIGMOIDOSCOPY
     Dosage: 1-3 TABS - USUALLY DAILY PO
     Route: 048
     Dates: start: 20070411, end: 20070411

REACTIONS (2)
  - DRUG INEFFECTIVE [None]
  - THERAPEUTIC RESPONSE UNEXPECTED WITH DRUG SUBSTITUTION [None]
